FAERS Safety Report 16960463 (Version 8)
Quarter: 2020Q2

REPORT INFORMATION
  Report Type: Spontaneous
  Country: CA (occurrence: CA)
  Receive Date: 20191025
  Receipt Date: 20200615
  Transmission Date: 20200713
  Serious: No
  Sender: FDA-Public Use
  Company Number: CA-CELLTRION INC.-2019CA025073

PATIENT

DRUGS (15)
  1. INFLECTRA [Suspect]
     Active Substance: INFLIXIMAB-DYYB
     Dosage: 600 MG, AT 0, 1, 4 WEEKS, THEN EVERY 8 WEEKS
     Route: 042
     Dates: start: 20190904
  2. INFLECTRA [Suspect]
     Active Substance: INFLIXIMAB-DYYB
     Dosage: 1100 MG, AT 0, 1, 4 WEEKS, THEN EVERY 8 WEEKS
     Route: 042
     Dates: start: 20200127, end: 20200127
  3. FLAGYL [Concomitant]
     Active Substance: METRONIDAZOLE\METRONIDAZOLE HYDROCHLORIDE
     Dosage: UNK
  4. INFLECTRA [Suspect]
     Active Substance: INFLIXIMAB-DYYB
     Dosage: 1100 MG, AT 0, 1, 4 WEEKS, THEN EVERY 8 WEEKS
     Route: 042
     Dates: start: 20190917
  5. INFLECTRA [Suspect]
     Active Substance: INFLIXIMAB-DYYB
     Dosage: 1100 MG, AT 0, 1, 4 WEEKS, THEN EVERY 8 WEEKS
     Route: 042
     Dates: start: 20191129
  6. INFLECTRA [Suspect]
     Active Substance: INFLIXIMAB-DYYB
     Dosage: 1100 MG, AT 0, 1, 4 WEEKS, THEN EVERY 8 WEEKS
     Route: 042
     Dates: start: 20200519
  7. INFLECTRA [Suspect]
     Active Substance: INFLIXIMAB-DYYB
     Dosage: 1100 MG, AT 0, 1, 4 WEEKS, THEN EVERY 8 WEEKS
     Route: 042
     Dates: start: 20200323
  8. CIPRO [Concomitant]
     Active Substance: CIPROFLOXACIN HYDROCHLORIDE
     Dosage: UNK
  9. PREDNISONE. [Concomitant]
     Active Substance: PREDNISONE
     Dosage: 40 MG, DAILY(TAPERING 5 MG WEEKLY)
     Route: 048
     Dates: start: 201904
  10. PREDNISONE. [Concomitant]
     Active Substance: PREDNISONE
     Dosage: UNK
     Route: 042
     Dates: start: 201908
  11. MEZAVANT [Concomitant]
     Active Substance: MESALAMINE
     Dosage: UNK
  12. INFLECTRA [Suspect]
     Active Substance: INFLIXIMAB-DYYB
     Dosage: 1100 MG, AT 0, 1, 4 WEEKS, THEN EVERY 8 WEEKS
     Route: 042
     Dates: start: 20191002
  13. PREDNISONE. [Concomitant]
     Active Substance: PREDNISONE
     Dosage: 40 MG, (TAPERING 5 MG WEEKLY)
     Route: 048
     Dates: start: 201908
  14. INFLECTRA [Suspect]
     Active Substance: INFLIXIMAB-DYYB
     Indication: COLITIS ULCERATIVE
     Dosage: 600 MG, AT 0, 1, 4 WEEKS, THEN EVERY 8 WEEKS
     Route: 042
     Dates: start: 20190901
  15. PREDNISONE. [Concomitant]
     Active Substance: PREDNISONE
     Dosage: UNK

REACTIONS (5)
  - Weight increased [Unknown]
  - Blood pressure fluctuation [Unknown]
  - Inappropriate schedule of product administration [Unknown]
  - Off label use [Unknown]
  - Intentional product use issue [Unknown]

NARRATIVE: CASE EVENT DATE: 20190901
